FAERS Safety Report 21985094 (Version 1)
Quarter: 2023Q1

REPORT INFORMATION
  Report Type: Spontaneous
  Country: US (occurrence: None)
  Receive Date: 20230210
  Receipt Date: 20230210
  Transmission Date: 20230418
  Serious: Yes (unspecified)
  Sender: FDA-Public Use
  Company Number: None

PATIENT
  Age: 8 Week
  Sex: Male
  Weight: 2.7 kg

DRUGS (1)
  1. OFIRMEV [Suspect]
     Active Substance: ACETAMINOPHEN

REACTIONS (3)
  - Incorrect dose administered [None]
  - Accidental overdose [None]
  - Dose calculation error [None]

NARRATIVE: CASE EVENT DATE: 20230125
